FAERS Safety Report 9090593 (Version 1)
Quarter: 2013Q1

REPORT INFORMATION
  Report Type: Report from Study
  Country: US (occurrence: US)
  Receive Date: 20130201
  Receipt Date: 20130201
  Transmission Date: 20140127
  Serious: No
  Sender: FDA-Public Use
  Company Number: US-ABBOTT-12P-163-1021438-00

PATIENT
  Age: 30 Year
  Sex: Male

DRUGS (2)
  1. HUMIRA [Suspect]
     Indication: PSORIASIS
     Dosage: LOADING DOSE
     Route: 058
     Dates: start: 20121204, end: 20121204
  2. HUMIRA [Suspect]
     Route: 058

REACTIONS (2)
  - Malaise [Not Recovered/Not Resolved]
  - Respiratory tract infection [Not Recovered/Not Resolved]
